FAERS Safety Report 6878527-2 (Version None)
Quarter: 2010Q3

REPORT INFORMATION
  Report Type: 
  Country: None (occurrence: None)
  Receive Date: 20100728
  Receipt Date: 20080505
  Transmission Date: 20110219
  Serious: Yes (Other)
  Sender: FDA-Public Use
  Company Number: US-PFIZER INC-2008036500

PATIENT
  Sex: Female
  Weight: 77.1 kg

DRUGS (4)
  1. CHANTIX [Suspect]
     Indication: EX-TOBACCO USER
     Dates: start: 20080201, end: 20080201
  2. NEURONTIN [Suspect]
     Indication: PAIN
  3. ELAVIL [Suspect]
     Indication: PAIN
  4. CYMBALTA [Suspect]
     Indication: PAIN

REACTIONS (6)
  - CONVULSION [None]
  - DIZZINESS [None]
  - DROOLING [None]
  - FALL [None]
  - LOSS OF CONSCIOUSNESS [None]
  - NAUSEA [None]
